FAERS Safety Report 5646003-0 (Version None)
Quarter: 2008Q1

REPORT INFORMATION
  Report Type: 
  Country: None (occurrence: None)
  Receive Date: 20080229
  Receipt Date: 20080218
  Transmission Date: 20080703
  Serious: Yes (Other)
  Sender: FDA-Public Use
  Company Number: AU-PFIZER INC-2008015613

PATIENT
  Sex: Female

DRUGS (2)
  1. ZELDOX (CAPSULES) [Suspect]
     Indication: BIPOLAR II DISORDER
  2. LOVAN [Concomitant]

REACTIONS (5)
  - ANXIETY [None]
  - CENTRAL NERVOUS SYSTEM STIMULATION [None]
  - HYPERSENSITIVITY [None]
  - PARAESTHESIA [None]
  - TREMOR [None]
